FAERS Safety Report 7281701-7 (Version None)
Quarter: 2010Q4

REPORT INFORMATION
  Report Type: 
  Country: None (occurrence: None)
  Receive Date: 20101221
  Receipt Date: 20100308
  Transmission Date: 20110411
  Serious: Yes (Hospitalization)
  Sender: FDA-Public Use
  Company Number: WAES 1003USA01225

PATIENT
  Age: 75 Year
  Sex: Male
  Weight: 87.5442 kg

DRUGS (1)
  1. JANUVIA [Suspect]
     Indication: TYPE 2 DIABETES MELLITUS
     Dosage: 100 MG/DAILY/PO
     Route: 048
     Dates: start: 20090101, end: 20100305

REACTIONS (2)
  - ABDOMINAL PAIN [None]
  - PANCREATITIS [None]
